FAERS Safety Report 9843794 (Version 1)
Quarter: 2013Q4

REPORT INFORMATION
  Report Type: Spontaneous
  Country: US (occurrence: None)
  Receive Date: 20131223
  Receipt Date: 20131223
  Transmission Date: 20140711
  Serious: Yes (Other)
  Sender: FDA-Public Use
  Company Number: 1000051784

PATIENT
  Age: 33 Year
  Sex: Female

DRUGS (5)
  1. LINZESS [Suspect]
     Indication: IRRITABLE BOWEL SYNDROME
     Route: 048
     Dates: start: 20131013, end: 20131015
  2. BENTYL (DICYCLOVERINE HYDROCHLORIDE) (DICYCLOVERINE HYDROCHLORIDE) [Concomitant]
  3. COLACE [Concomitant]
  4. FIBER (POLYCARBOPHIL CALCIUM) [Concomitant]
  5. MVI (VITAMINS NOS) (VITAMINS NOS) [Concomitant]

REACTIONS (4)
  - Gastrooesophageal reflux disease [None]
  - Abdominal distension [None]
  - Diarrhoea [None]
  - Abdominal pain [None]
